FAERS Safety Report 6498752-2 (Version None)
Quarter: 2009Q4

REPORT INFORMATION
  Report Type: 
  Country: None (occurrence: None)
  Receive Date: 20091215
  Receipt Date: 20091202
  Transmission Date: 20100525
  Serious: Yes (Hospitalization)
  Sender: FDA-Public Use
  Company Number: PHHY2009VE53251

PATIENT
  Sex: Female

DRUGS (2)
  1. EXELON [Suspect]
     Indication: DEMENTIA ALZHEIMER'S TYPE
     Dosage: 6 MG, DAILY
     Dates: start: 20060101
  2. RISPERIDONE [Concomitant]
     Route: 048

REACTIONS (2)
  - FALL [None]
  - FEMUR FRACTURE [None]
